FAERS Safety Report 10598891 (Version 1)
Quarter: 2014Q4

REPORT INFORMATION
  Report Type: Spontaneous
  Country: US (occurrence: US)
  Receive Date: 20141121
  Receipt Date: 20141121
  Transmission Date: 20150529
  Serious: Yes (Other)
  Sender: FDA-Public Use
  Company Number: US-BRISTOL-MYERS SQUIBB COMPANY-21613658

PATIENT
  Age: 45 Year
  Sex: Male
  Weight: 120.18 kg

DRUGS (2)
  1. ABILIFY [Suspect]
     Active Substance: ARIPIPRAZOLE
     Route: 048
  2. CLOZAPINE. [Concomitant]
     Active Substance: CLOZAPINE

REACTIONS (4)
  - Laziness [Unknown]
  - Phobia [Unknown]
  - Anxiety [Unknown]
  - Panic attack [Unknown]
